FAERS Safety Report 9156645 (Version 1)
Quarter: 2013Q1

REPORT INFORMATION
  Report Type: Spontaneous
  Country: CL (occurrence: None)
  Receive Date: 20130206
  Receipt Date: 20130206
  Transmission Date: 20140127
  Serious: Yes (Other)
  Sender: FDA-Public Use
  Company Number: CL-1196338

PATIENT
  Age: 44 Year
  Sex: Female
  Weight: 68 kg

DRUGS (2)
  1. TOBRADEX OPHTHALMIC SUSPENSION (TOBRADEX SUSPENSION) [Suspect]
     Indication: CONJUNCTIVITIS
     Route: 047
     Dates: start: 2012
  2. REFRESH TEARS [Concomitant]

REACTIONS (1)
  - Dacryostenosis acquired [None]
